FAERS Safety Report 9193233 (Version 2)
Quarter: 2013Q2

REPORT INFORMATION
  Report Type: Spontaneous
  Country: US (occurrence: None)
  Receive Date: 20130319
  Receipt Date: 20130403
  Transmission Date: 20140414
  Serious: Yes (Hospitalization)
  Sender: FDA-Public Use
  Company Number: 2013PROUSA02620

PATIENT
  Age: 72 Year
  Sex: Male
  Weight: 78.9 kg

DRUGS (4)
  1. PROVENGE [Suspect]
     Indication: PROSTATE CANCER METASTATIC
     Route: 042
     Dates: start: 20130208, end: 20130208
  2. AMLODIPINE (AMLODIPINE BESILATE) [Concomitant]
  3. TAMSULOSIN HYDROCHLORIDE [Concomitant]
  4. HYDROCHLOROTHIAZIDE [Concomitant]

REACTIONS (9)
  - Staphylococcal bacteraemia [None]
  - Metastases to bone [None]
  - Mental status changes [None]
  - Syncope [None]
  - Device related infection [None]
  - Urinary retention [None]
  - Loss of consciousness [None]
  - Bradycardia [None]
  - Thrombocytosis [None]
